FAERS Safety Report 9461739 (Version 1)
Quarter: 2013Q3

REPORT INFORMATION
  Report Type: Spontaneous
  Country: CN (occurrence: CN)
  Receive Date: 20130816
  Receipt Date: 20130816
  Transmission Date: 20140515
  Serious: Yes (Death)
  Sender: FDA-Public Use
  Company Number: CN-ASTELLAS-2013JP008464

PATIENT
  Age: 62 Year
  Sex: Male
  Weight: 49 kg

DRUGS (1)
  1. MYCAMINE [Suspect]
     Indication: FUNGAL INFECTION
     Dosage: 150 MG, UID/QD
     Route: 042
     Dates: start: 20130802, end: 20130803

REACTIONS (1)
  - Death [Fatal]
